FAERS Safety Report 16124005 (Version 1)
Quarter: 2019Q1

REPORT INFORMATION
  Report Type: Spontaneous
  Country: US (occurrence: US)
  Receive Date: 20190222
  Receipt Date: 20190222
  Transmission Date: 20190418
  Serious: Yes (Hospitalization)
  Sender: FDA-Public Use
  Company Number: None

PATIENT
  Sex: Female

DRUGS (9)
  1. METFORMIN [Concomitant]
     Active Substance: METFORMIN HYDROCHLORIDE
  2. AZITHROMYCIN ANHYDROUS. [Concomitant]
     Active Substance: AZITHROMYCIN ANHYDROUS
  3. NOVOFINE [Concomitant]
     Active Substance: INSULIN NOS
  4. GEMFIBROZIL. [Concomitant]
     Active Substance: GEMFIBROZIL
  5. HUMALOG [Concomitant]
     Active Substance: INSULIN LISPRO
  6. ENALAPRIL [Concomitant]
     Active Substance: ENALAPRIL
  7. AMOX/K CLAV [Concomitant]
     Active Substance: AMOXICILLIN\CLAVULANATE POTASSIUM
  8. ESBRIET [Suspect]
     Active Substance: PIRFENIDONE
     Indication: PULMONARY FIBROSIS
     Route: 048
     Dates: start: 20170728
  9. LORATADINE. [Concomitant]
     Active Substance: LORATADINE

REACTIONS (2)
  - Bacterial infection [None]
  - Product dose omission [None]
